FAERS Safety Report 9461585 (Version 3)
Quarter: 2013Q3

REPORT INFORMATION
  Report Type: Spontaneous
  Country: DE (occurrence: DE)
  Receive Date: 20130816
  Receipt Date: 20130911
  Transmission Date: 20140515
  Serious: Yes (Hospitalization, Other)
  Sender: FDA-Public Use
  Company Number: DE-PFIZER INC-2013236654

PATIENT
  Age: 69 Year
  Sex: Male

DRUGS (5)
  1. RAMILICH [Suspect]
     Indication: HYPERTENSION
     Dosage: 5 MG, UNK
     Route: 048
     Dates: start: 201306, end: 201307
  2. RAMILICH [Suspect]
     Dosage: 5 MG, UNK
     Route: 048
  3. METFORMIN [Suspect]
     Indication: DIABETES MELLITUS
     Dosage: 500 MG, UNK
     Route: 048
     Dates: start: 201306, end: 201307
  4. AMLODIPINE [Concomitant]
     Indication: HYPERTENSION
     Dosage: 5 MG, 2X/DAY
  5. METOPROLOL [Concomitant]
     Indication: HYPERTENSION
     Dosage: 100 MG, 2X/DAY

REACTIONS (8)
  - Vomiting [Recovered/Resolved]
  - Haemoptysis [Unknown]
  - Blood glucose increased [Recovered/Resolved]
  - Drug intolerance [Unknown]
  - Hypertensive crisis [Recovered/Resolved]
  - Abdominal pain [Recovered/Resolved]
  - Faecaloma [Recovered/Resolved]
  - Urinary retention [Unknown]
